FAERS Safety Report 24063331 (Version 2)
Quarter: 2024Q3

REPORT INFORMATION
  Report Type: Spontaneous
  Country: CA (occurrence: CA)
  Receive Date: 20240709
  Receipt Date: 20240822
  Transmission Date: 20241016
  Serious: Yes (Other)
  Sender: Waylis
  Company Number: CA-WT-2024-AMR-079592

PATIENT

DRUGS (1)
  1. AVODART [Suspect]
     Active Substance: DUTASTERIDE
     Indication: Prostatic specific antigen
     Route: 065
     Dates: start: 2009, end: 2021

REACTIONS (3)
  - Prostatectomy [Unknown]
  - Dry skin [Unknown]
  - Therapeutic response unexpected [Unknown]
